FAERS Safety Report 7650740-6 (Version None)
Quarter: 2011Q3

REPORT INFORMATION
  Report Type: 
  Country: None (occurrence: None)
  Receive Date: 20110802
  Receipt Date: 20110722
  Transmission Date: 20111222
  Serious: Yes (Other)
  Sender: FDA-Public Use
  Company Number: JP-PFIZER INC-2011172675

PATIENT
  Age: 74 Year
  Sex: Male
  Weight: 57 kg

DRUGS (8)
  1. RESTAMIN [Concomitant]
     Indication: PROPHYLAXIS
     Route: 048
  2. GENTACIN [Concomitant]
     Dosage: UNK
     Route: 003
     Dates: start: 20101209
  3. GLUCOBAY [Concomitant]
     Dosage: 100 MG, 3X/DAY
     Route: 048
     Dates: start: 20110113
  4. AMARYL [Concomitant]
     Dosage: 1 MG, 1X/DAY
     Route: 048
     Dates: start: 20110113
  5. GLUFAST [Concomitant]
     Dosage: 10 MG, 3X/DAY
     Route: 048
     Dates: start: 20110126
  6. TEMSIROLIMUS [Suspect]
     Dosage: 25 MG, WEEKLY
     Route: 041
     Dates: start: 20110106, end: 20110217
  7. TEMSIROLIMUS [Suspect]
     Indication: RENAL CELL CARCINOMA
     Dosage: 25 MG, WEEKLY
     Route: 041
     Dates: start: 20101125, end: 20101222
  8. ACTOS [Concomitant]
     Dosage: 15 MG, 1X/DAY
     Route: 048
     Dates: start: 20110113

REACTIONS (1)
  - PROTEIN URINE [None]
